FAERS Safety Report 15017831 (Version 1)
Quarter: 2018Q2

REPORT INFORMATION
  Report Type: Spontaneous
  Country: US (occurrence: US)
  Receive Date: 20180523
  Receipt Date: 20180523
  Transmission Date: 20180711
  Serious: No
  Sender: FDA-Public Use
  Company Number: None

PATIENT
  Age: 69 Year
  Sex: Female
  Weight: 106.59 kg

DRUGS (1)
  1. CLONAZEPAM .5MG TABLET UNKNOWN [Suspect]
     Active Substance: CLONAZEPAM
     Indication: SLEEP DISORDER
     Dates: start: 20180427, end: 20180428

REACTIONS (2)
  - Initial insomnia [None]
  - Drug ineffective [None]

NARRATIVE: CASE EVENT DATE: 20180427
